FAERS Safety Report 9044898 (Version 3)
Quarter: 2015Q4

REPORT INFORMATION
  Report Type: Report from Study
  Country: JP (occurrence: JP)
  Receive Date: 20130130
  Receipt Date: 20151008
  Transmission Date: 20160305
  Serious: Yes (Hospitalization, Other)
  Sender: FDA-Public Use
  Company Number: JP-GLAXOSMITHKLINE-B0859963A

PATIENT
  Sex: Male

DRUGS (9)
  1. BAYASPIRIN [Concomitant]
     Active Substance: ASPIRIN
     Dosage: 100 MG, 1D
     Dates: start: 20120110
  2. AMARYL [Concomitant]
     Active Substance: GLIMEPIRIDE
     Dosage: 0.5 MG, 1D
     Dates: start: 20120118
  3. ROCEPHIN [Concomitant]
     Active Substance: CEFTRIAXONE SODIUM
     Dosage: 2 G, 1D
     Dates: start: 20111226, end: 20111228
  4. EQUA [Concomitant]
     Active Substance: VILDAGLIPTIN
     Dosage: 50 MG, 1D
     Dates: start: 20120116
  5. BASEN [Concomitant]
     Active Substance: VOGLIBOSE
     Dosage: 0.9 MG, 1D
     Dates: start: 20120116
  6. MEROPEN [Concomitant]
     Active Substance: MEROPENEM
     Dosage: 1 G, 1D
     Dates: start: 20120112, end: 20120118
  7. ELTROMBOPAG [Suspect]
     Active Substance: ELTROMBOPAG
     Indication: IMMUNE THROMBOCYTOPENIC PURPURA
     Dosage: 12.5 MG, QD
     Route: 048
  8. OZAPEN [Concomitant]
     Dosage: 80 MG, 1D
     Dates: start: 20111226, end: 20111231
  9. TAKEPRON [Concomitant]
     Active Substance: LANSOPRAZOLE
     Indication: PROPHYLAXIS
     Dosage: 15 MG, 1D
     Dates: start: 20111227

REACTIONS (1)
  - Cerebral infarction [Recovering/Resolving]
